FAERS Safety Report 6083473-0 (Version None)
Quarter: 2009Q1

REPORT INFORMATION
  Report Type: 
  Country: None (occurrence: None)
  Receive Date: 20090219
  Receipt Date: 20090212
  Transmission Date: 20090719
  Serious: Yes (Hospitalization)
  Sender: FDA-Public Use
  Company Number: US-KINGPHARMUSA00001-K200900031

PATIENT
  Age: 40 Year
  Sex: Male

DRUGS (7)
  1. ALTACE [Suspect]
     Indication: HYPERTENSION
     Dosage: 5 MG, QD
     Route: 048
     Dates: start: 20060501
  2. INSULIN ACTRAPID                   /00646001/ [Suspect]
     Indication: PANCREATOGENOUS DIABETES
     Dosage: UNK
     Route: 058
     Dates: start: 20070601
  3. CARVEDILOL [Suspect]
     Indication: HYPERTENSION
     Dosage: 6 MG, QD
     Route: 048
     Dates: start: 20060501
  4. CARVEDILOL [Suspect]
     Indication: CORONARY ARTERY DISEASE
  5. OMEPRAZOLE [Suspect]
     Indication: PROPHYLAXIS AGAINST GASTROINTESTINAL ULCER
     Dosage: 20 MG, QD
     Route: 048
     Dates: start: 20060301
  6. ACETYLSALICYLIC ACID [Concomitant]
     Indication: CORONARY ARTERY DISEASE
     Dosage: 100 MG, UNK
     Route: 048
     Dates: start: 20060301
  7. SIMVASTATIN [Concomitant]
     Indication: HYPERLIPIDAEMIA
     Dosage: 40 MG, UNK
     Route: 048
     Dates: start: 20060501

REACTIONS (7)
  - DIZZINESS [None]
  - DRUG INTERACTION [None]
  - FATIGUE [None]
  - HYPERHIDROSIS [None]
  - HYPOGLYCAEMIA [None]
  - MALAISE [None]
  - SOMNOLENCE [None]
